FAERS Safety Report 17152678 (Version 1)
Quarter: 2019Q4

REPORT INFORMATION
  Report Type: Spontaneous
  Country: US (occurrence: US)
  Receive Date: 20191213
  Receipt Date: 20191213
  Transmission Date: 20200122
  Serious: No
  Sender: FDA-Public Use
  Company Number: US-NOVOPROD-650891

PATIENT
  Age: 76 Year
  Sex: Male

DRUGS (1)
  1. LEVEMIR [Suspect]
     Active Substance: INSULIN DETEMIR
     Indication: TYPE 2 DIABETES MELLITUS
     Dosage: 80 IN MORNING, 70 AT NIGHT
     Route: 058
     Dates: start: 2007, end: 201902

REACTIONS (2)
  - Skin ulcer [Not Recovered/Not Resolved]
  - Stomach mass [Not Recovered/Not Resolved]
